FAERS Safety Report 7215553-8 (Version None)
Quarter: 2011Q1

REPORT INFORMATION
  Report Type: 
  Country: None (occurrence: None)
  Receive Date: 20110104
  Receipt Date: 20110104
  Transmission Date: 20110831
  Serious: Yes (Hospitalization)
  Sender: FDA-Public Use
  Company Number: None

PATIENT
  Sex: Female
  Weight: 79 kg

DRUGS (13)
  1. NEULASTA [Suspect]
     Dosage: 6 MG
     Dates: end: 20101221
  2. PHENERGAN [Concomitant]
  3. DEXAMETHASONE [Suspect]
     Dosage: 10 MG
     Dates: start: 20101220
  4. ATIVAN [Concomitant]
  5. BENAZEPRIL HYDROCHLORIDE [Concomitant]
  6. ZOFRAN [Concomitant]
  7. AMLODIPINE [Concomitant]
  8. CHOLPHENIRAMINE HYDROCODONE (TUSSIONEX) [Concomitant]
  9. EMEND [Concomitant]
  10. LORAZEPAM [Concomitant]
  11. DOXORUBICIN HYDROCHLORIDE [Suspect]
     Dosage: 110 MG
     Dates: end: 20101020
  12. CYCLOPHOSPHAMIDE [Suspect]
     Dosage: 1104 MG
     Dates: end: 20101220
  13. ZOCOR [Concomitant]

REACTIONS (10)
  - DELUSION [None]
  - MENTAL STATUS CHANGES [None]
  - FEAR [None]
  - PANIC ATTACK [None]
  - PSYCHOTIC DISORDER [None]
  - ADJUSTMENT DISORDER WITH ANXIETY [None]
  - MUTISM [None]
  - CONVERSION DISORDER [None]
  - STRESS [None]
  - DELIRIUM [None]
